FAERS Safety Report 7859893-8 (Version None)
Quarter: 2011Q4

REPORT INFORMATION
  Report Type: 
  Country: None (occurrence: None)
  Receive Date: 20111026
  Receipt Date: 20111026
  Transmission Date: 20120403
  Serious: Yes (Hospitalization)
  Sender: FDA-Public Use
  Company Number: None

PATIENT
  Age: 66 Year
  Sex: Female
  Weight: 84.369 kg

DRUGS (10)
  1. COLACE [Concomitant]
  2. VALPROIC ACID [Concomitant]
  3. DECADRON [Concomitant]
  4. SEROQUEL [Concomitant]
  5. CARDIZEM [Concomitant]
  6. ATIVAN [Concomitant]
  7. HALDOL [Concomitant]
  8. MULTAQ [Concomitant]
  9. GLIADEL [Suspect]
     Indication: GLIOBLASTOMA MULTIFORME
     Dosage: IMPLANT DURING SURGERY
     Dates: start: 20110601
  10. ASPIRIN [Concomitant]

REACTIONS (7)
  - HYPOTENSION [None]
  - RESPIRATORY FAILURE [None]
  - SEPTIC SHOCK [None]
  - LARGE INTESTINAL ULCER [None]
  - ATRIAL FIBRILLATION [None]
  - DIVERTICULAR PERFORATION [None]
  - CELLULITIS [None]
